FAERS Safety Report 15009448 (Version 1)
Quarter: 2018Q2

REPORT INFORMATION
  Report Type: Report from Study
  Country: NL (occurrence: NL)
  Receive Date: 20180614
  Receipt Date: 20180614
  Transmission Date: 20180711
  Serious: Yes (Death)
  Sender: FDA-Public Use
  Company Number: NL-ROCHE-2137206

PATIENT
  Sex: Female

DRUGS (3)
  1. CAPECITABINE. [Suspect]
     Active Substance: CAPECITABINE
     Indication: COLORECTAL CANCER
     Dosage: DATE OF LAST CYCLE: 26/APR/2018
     Route: 065
     Dates: start: 20180413
  2. BEVACIZUMAB. [Suspect]
     Active Substance: BEVACIZUMAB
     Indication: COLORECTAL CANCER
     Dosage: DATE OF LAST CYCLE: 13/APR/2018
     Route: 065
     Dates: start: 20180413
  3. OXALIPLATIN. [Suspect]
     Active Substance: OXALIPLATIN
     Indication: COLORECTAL CANCER
     Dosage: DATE OF LAST CYCLE: 13/APR/2018
     Route: 065
     Dates: start: 20180413

REACTIONS (2)
  - Abdominal pain [Fatal]
  - Diarrhoea [Fatal]
